FAERS Safety Report 17604860 (Version 1)
Quarter: 2020Q1

REPORT INFORMATION
  Report Type: Report from Study
  Country: US (occurrence: US)
  Receive Date: 20200331
  Receipt Date: 20200331
  Transmission Date: 20200409
  Serious: Yes (Other)
  Sender: FDA-Public Use
  Company Number: US-BRISTOL-MYERS SQUIBB COMPANY-BMS-2020-025285

PATIENT
  Age: 73 Year
  Sex: Female
  Weight: 65.77 kg

DRUGS (3)
  1. WARFARIN SODIUM. [Suspect]
     Active Substance: WARFARIN SODIUM
     Indication: PRODUCT USED FOR UNKNOWN INDICATION
     Dosage: 7.5 MILLIGRAM
     Route: 065
     Dates: start: 1994
  2. XELJANZ [Suspect]
     Active Substance: TOFACITINIB CITRATE
     Indication: PRODUCT USED FOR UNKNOWN INDICATION
     Route: 065
  3. AIMOVIG [Concomitant]
     Active Substance: ERENUMAB-AOOE
     Indication: MIGRAINE
     Dosage: 140 MILLIGRAM, QMO STARTED 6 MONTHS AGO. IT WORKS
     Route: 065

REACTIONS (13)
  - Rhinorrhoea [Unknown]
  - International normalised ratio abnormal [Unknown]
  - Movement disorder [Unknown]
  - Influenza [Recovered/Resolved]
  - Pulmonary embolism [Unknown]
  - Rheumatoid arthritis [Unknown]
  - Vitamin B12 deficiency [Unknown]
  - Asthma [Unknown]
  - Headache [Unknown]
  - Pneumonia [Recovered/Resolved]
  - Meningitis viral [Recovering/Resolving]
  - Dysphonia [Unknown]
  - Immunodeficiency common variable [Unknown]

NARRATIVE: CASE EVENT DATE: 2010
